FAERS Safety Report 16220357 (Version 1)
Quarter: 2019Q2

REPORT INFORMATION
  Report Type: Spontaneous
  Country: US (occurrence: US)
  Receive Date: 20190420
  Receipt Date: 20190420
  Transmission Date: 20190711
  Serious: Yes (Other)
  Sender: FDA-Public Use
  Company Number: PHHY2019US090901

PATIENT
  Age: 71 Year
  Sex: Female

DRUGS (1)
  1. VANCOMYCIN [Suspect]
     Active Substance: VANCOMYCIN
     Indication: PRODUCT USED FOR UNKNOWN INDICATION
     Dosage: 0.25 MG, UNK
     Route: 031

REACTIONS (9)
  - Retinal vascular disorder [Unknown]
  - Vitreous haze [Unknown]
  - Retinal neovascularisation [Recovering/Resolving]
  - Retinal vein occlusion [Recovering/Resolving]
  - Optic atrophy [Recovering/Resolving]
  - Retinal ischaemia [Unknown]
  - Visual acuity reduced [Unknown]
  - Retinal vasculitis [Unknown]
  - Retinal haemorrhage [Recovering/Resolving]
